FAERS Safety Report 4595540-9 (Version None)
Quarter: 2005Q1

REPORT INFORMATION
  Report Type: 
  Country: None (occurrence: None)
  Receive Date: 20050228
  Receipt Date: 20050228
  Transmission Date: 20050727
  Serious: Yes (Other)
  Sender: FDA-Public Use
  Company Number: None

PATIENT
  Sex: Female
  Weight: 59.8748 kg

DRUGS (2)
  1. LOESTRIN 1.5/30 [Suspect]
     Indication: CONTRACEPTION
     Dosage: 1 PO QD     5 MONTHS COMBINED
     Route: 048
  2. JUNEL 1.5/30 [Suspect]
     Indication: CONTRACEPTION
     Dosage: 1 PO QD   5 MONTHS COMBINED
     Route: 048

REACTIONS (2)
  - METRORRHAGIA [None]
  - PHARMACEUTICAL PRODUCT COMPLAINT [None]
